FAERS Safety Report 6735130-2 (Version None)
Quarter: 2010Q2

REPORT INFORMATION
  Report Type: 
  Country: None (occurrence: None)
  Receive Date: 20100521
  Receipt Date: 20100514
  Transmission Date: 20101027
  Serious: Yes (Other)
  Sender: FDA-Public Use
  Company Number: US-JNJFOC-20100308498

PATIENT
  Sex: Female
  Weight: 81.65 kg

DRUGS (2)
  1. FENTANYL CITRATE [Suspect]
     Indication: PAIN
     Route: 062
  2. DURAGESIC-100 [Suspect]
     Indication: PAIN
     Route: 062

REACTIONS (6)
  - ADVERSE EVENT [None]
  - APPLICATION SITE RASH [None]
  - CONVULSION [None]
  - MALAISE [None]
  - SKIN BURNING SENSATION [None]
  - WRONG TECHNIQUE IN DRUG USAGE PROCESS [None]
